FAERS Safety Report 9117961 (Version 3)
Quarter: 2013Q2

REPORT INFORMATION
  Report Type: Spontaneous
  Country: US (occurrence: US)
  Receive Date: 20130208
  Receipt Date: 20130516
  Transmission Date: 20140414
  Serious: Yes (Hospitalization)
  Sender: FDA-Public Use
  Company Number: US-ELI_LILLY_AND_COMPANY-US201301010515

PATIENT
  Age: 83 Year
  Sex: Female
  Weight: 46.26 kg

DRUGS (1)
  1. FORTEO [Suspect]
     Indication: OSTEOPOROSIS
     Dosage: 20 UG, QD
     Dates: start: 201204

REACTIONS (2)
  - Gastrointestinal disorder [Unknown]
  - Blood alkaline phosphatase increased [Recovered/Resolved]
